FAERS Safety Report 6768051-X (Version None)
Quarter: 2010Q2

REPORT INFORMATION
  Report Type: 
  Country: None (occurrence: None)
  Receive Date: 20100614
  Receipt Date: 20100609
  Transmission Date: 20101027
  Serious: Yes (Hospitalization)
  Sender: FDA-Public Use
  Company Number: B0659747A

PATIENT
  Age: 70 Year
  Sex: Male

DRUGS (3)
  1. AUGMENTIN '125' [Suspect]
     Indication: BRONCHITIS
     Route: 048
     Dates: start: 20100301, end: 20100301
  2. DETICENE [Suspect]
     Dosage: 1000MG PER DAY
     Route: 042
     Dates: start: 20100223, end: 20100401
  3. EMEND [Suspect]
     Indication: CHEMOTHERAPY
     Dosage: 3UNIT PER DAY
     Route: 065
     Dates: start: 20100223, end: 20100401

REACTIONS (7)
  - GENERAL PHYSICAL HEALTH DETERIORATION [None]
  - LIVER FUNCTION TEST ABNORMAL [None]
  - MUSCULAR WEAKNESS [None]
  - RASH [None]
  - RENAL FAILURE ACUTE [None]
  - THROMBOCYTOPENIA [None]
  - TUBULOINTERSTITIAL NEPHRITIS [None]
